APPROVED DRUG PRODUCT: TOLAZAMIDE
Active Ingredient: TOLAZAMIDE
Strength: 250MG
Dosage Form/Route: TABLET;ORAL
Application: A071358 | Product #001
Applicant: SUN PHARMACEUTICAL INDUSTRIES INC
Approved: Jul 16, 1987 | RLD: No | RS: No | Type: DISCN